FAERS Safety Report 5082257-X (Version None)
Quarter: 2006Q3

REPORT INFORMATION
  Report Type: 
  Country: None (occurrence: None)
  Receive Date: 20060815
  Receipt Date: 20060815
  Transmission Date: 20061208
  Serious: Yes (Other)
  Sender: FDA-Public Use
  Company Number: None

PATIENT
  Age: 59 Year
  Sex: Female
  Weight: 79.3795 kg

DRUGS (2)
  1. QUININE SULFATE [Suspect]
     Indication: MUSCLE SPASMS
     Dosage: 1 AT BEDTIME ONE  DAY PO
     Route: 048
     Dates: start: 20060728, end: 20060728
  2. QUININE SULFATE [Suspect]
     Indication: MUSCLE SPASMS
     Dosage: 1 AT BEDTIME ONE  DAY PO
     Route: 048
     Dates: start: 20060812, end: 20060812

REACTIONS (14)
  - ASTHENIA [None]
  - CHEST PAIN [None]
  - DEHYDRATION [None]
  - DIARRHOEA [None]
  - DIZZINESS [None]
  - DYSGEUSIA [None]
  - HEART RATE INCREASED [None]
  - HYPERHIDROSIS [None]
  - HYPERVENTILATION [None]
  - MALAISE [None]
  - MOVEMENT DISORDER [None]
  - NAUSEA [None]
  - RETCHING [None]
  - VOMITING [None]
